FAERS Safety Report 25495431 (Version 1)
Quarter: 2025Q2

REPORT INFORMATION
  Report Type: Spontaneous
  Country: US (occurrence: US)
  Receive Date: 20250630
  Receipt Date: 20250630
  Transmission Date: 20250717
  Serious: No
  Sender: ARDELYX
  Company Number: US-ARDELYX-2025ARDX002374

PATIENT
  Sex: Male

DRUGS (1)
  1. XPHOZAH [Suspect]
     Active Substance: TENAPANOR HYDROCHLORIDE
     Indication: Phosphorus metabolism disorder
     Route: 048
     Dates: start: 2025, end: 2025

REACTIONS (2)
  - Diarrhoea [Unknown]
  - Off label use [Unknown]
